FAERS Safety Report 6937491-8 (Version None)
Quarter: 2010Q3

REPORT INFORMATION
  Report Type: 
  Country: None (occurrence: None)
  Receive Date: 20100823
  Receipt Date: 20100726
  Transmission Date: 20110219
  Serious: Yes (Other)
  Sender: FDA-Public Use
  Company Number: PHEH2006US15162

PATIENT
  Sex: Female

DRUGS (16)
  1. AREDIA [Suspect]
     Dosage: 90 MG, QMO
     Route: 042
     Dates: end: 20020101
  2. ZOMETA [Suspect]
     Dosage: UNK
     Dates: end: 20050901
  3. CLINDAMYCIN [Concomitant]
  4. KYTRIL [Concomitant]
  5. COUMADIN [Concomitant]
  6. PREVACID [Concomitant]
  7. ACETAMINOPHEN [Concomitant]
  8. FIORICET [Concomitant]
  9. FASLODEX [Concomitant]
  10. VALIUM [Concomitant]
  11. DURAGESIC-100 [Concomitant]
  12. ANZEMET [Concomitant]
  13. LOMOTIL [Concomitant]
  14. LASIX [Concomitant]
  15. ALDACTONE [Concomitant]
  16. FENTANYL CITRATE [Concomitant]

REACTIONS (38)
  - AMMONIA INCREASED [None]
  - ARTHRALGIA [None]
  - ASCITES [None]
  - BACK PAIN [None]
  - BLOOD CALCIUM DECREASED [None]
  - BLOOD CALCIUM INCREASED [None]
  - BLOOD CREATININE INCREASED [None]
  - BLOOD POTASSIUM DECREASED [None]
  - BLOOD UREA DECREASED [None]
  - BLOOD UREA INCREASED [None]
  - CAROTID ARTERY STENOSIS [None]
  - CONSTIPATION [None]
  - DIARRHOEA [None]
  - EMPHYSEMA [None]
  - FAECALOMA [None]
  - HAEMATOCRIT DECREASED [None]
  - HAEMOGLOBIN DECREASED [None]
  - HEPATIC CIRRHOSIS [None]
  - HEPATIC ENCEPHALOPATHY [None]
  - HEPATOSPLENOMEGALY [None]
  - HYDRONEPHROSIS [None]
  - JAW DISORDER [None]
  - LEUKOCYTOSIS [None]
  - LIVER FUNCTION TEST ABNORMAL [None]
  - MENTAL STATUS CHANGES [None]
  - METASTASES TO LIVER [None]
  - MUCOSAL INFLAMMATION [None]
  - MUCOSAL ULCERATION [None]
  - NECROSIS [None]
  - OSTEONECROSIS OF JAW [None]
  - PAIN IN JAW [None]
  - PARACENTESIS [None]
  - PHARYNGEAL MASS [None]
  - PLATELET COUNT DECREASED [None]
  - PROTEIN TOTAL DECREASED [None]
  - RED BLOOD CELL COUNT DECREASED [None]
  - SERUM FERRITIN INCREASED [None]
  - UTERINE LEIOMYOMA [None]
